FAERS Safety Report 9704184 (Version 1)
Quarter: 2013Q4

REPORT INFORMATION
  Report Type: Report from Study
  Country: US (occurrence: US)
  Receive Date: 20131122
  Receipt Date: 20131122
  Transmission Date: 20140711
  Serious: Yes (Other)
  Sender: FDA-Public Use
  Company Number: US-JNJFOC-20131109818

PATIENT
  Sex: Female
  Weight: 73.48 kg

DRUGS (1)
  1. REMICADE [Suspect]
     Indication: CROHN^S DISEASE
     Route: 042
     Dates: start: 201303

REACTIONS (2)
  - Squamous cell carcinoma [Recovered/Resolved]
  - Adverse event [Unknown]
